FAERS Safety Report 14152729 (Version 1)
Quarter: 2017Q4

REPORT INFORMATION
  Report Type: Spontaneous
  Country: US (occurrence: US)
  Receive Date: 20171102
  Receipt Date: 20171102
  Transmission Date: 20180321
  Serious: No
  Sender: FDA-Public Use
  Company Number: US-009507513-1710USA002254

PATIENT
  Age: 24 Year
  Sex: Female
  Weight: 71.66 kg

DRUGS (1)
  1. NEXPLANON [Suspect]
     Active Substance: ETONOGESTREL
     Indication: CONTRACEPTION
     Dosage: ONE ROD EVERY THREE YEARS
     Route: 059
     Dates: start: 20170315, end: 20170929

REACTIONS (3)
  - Paraesthesia [Unknown]
  - Weight bearing difficulty [Unknown]
  - Implant site pain [Unknown]

NARRATIVE: CASE EVENT DATE: 201709
